FAERS Safety Report 24372274 (Version 1)
Quarter: 2024Q3

REPORT INFORMATION
  Report Type: Spontaneous
  Country: IT (occurrence: IT)
  Receive Date: 20240927
  Receipt Date: 20240927
  Transmission Date: 20241017
  Serious: Yes (Other)
  Sender: MYLAN
  Company Number: IT-MYLANLABS-2024M1086901

PATIENT
  Age: 54 Year
  Sex: Male

DRUGS (4)
  1. TRIAMCINOLONE [Suspect]
     Active Substance: TRIAMCINOLONE
     Indication: Arthritis
     Dosage: 40 MILLIGRAM
     Route: 014
  2. CYCLOSPORINE [Concomitant]
     Active Substance: CYCLOSPORINE
     Indication: Psoriasis
     Dosage: 5 MILLIGRAM/KILOGRAM, QD
     Route: 065
  3. INFLIXIMAB [Concomitant]
     Active Substance: INFLIXIMAB
     Indication: Psoriasis
     Dosage: 450 MILLIGRAM (AT WEEKS 0 AND 2)
     Route: 065
  4. INFLIXIMAB [Concomitant]
     Active Substance: INFLIXIMAB
     Indication: Arthritis

REACTIONS (2)
  - Condition aggravated [Recovering/Resolving]
  - Erythrodermic psoriasis [Recovering/Resolving]
